FAERS Safety Report 22629834 (Version 1)
Quarter: 2023Q2

REPORT INFORMATION
  Report Type: Spontaneous
  Country: PT (occurrence: PT)
  Receive Date: 20230622
  Receipt Date: 20230622
  Transmission Date: 20230722
  Serious: Yes (Other)
  Sender: FDA-Public Use
  Company Number: PT-SUN PHARMACEUTICAL INDUSTRIES LTD-2023R1-395904

PATIENT
  Age: 17 Year
  Sex: Female

DRUGS (7)
  1. SERTRALINE [Interacting]
     Active Substance: SERTRALINE HYDROCHLORIDE
     Indication: Tuberculosis
     Route: 065
  2. LINEZOLID [Interacting]
     Active Substance: LINEZOLID
     Indication: Tuberculosis
     Dosage: UNK
     Route: 065
  3. CASPOFUNGIN [Interacting]
     Active Substance: CASPOFUNGIN
     Indication: Tuberculosis
     Dosage: UNK
     Route: 065
  4. LEVOTHYROXINE [Interacting]
     Active Substance: LEVOTHYROXINE
     Indication: Tuberculosis
     Dosage: UNK
     Route: 065
  5. ETHINYL ESTRADIOL [Interacting]
     Active Substance: ETHINYL ESTRADIOL
     Indication: Tuberculosis
     Dosage: UNK
     Route: 065
  6. NORELGESTROMIN [Interacting]
     Active Substance: NORELGESTROMIN
     Indication: Tuberculosis
     Dosage: UNK
     Route: 065
  7. RIFAMPIN [Interacting]
     Active Substance: RIFAMPIN
     Indication: Tuberculosis
     Dosage: UNK
     Route: 065

REACTIONS (2)
  - Hyperuricaemia [Unknown]
  - Drug interaction [Unknown]
